FAERS Safety Report 6817845-0 (Version None)
Quarter: 2010Q3

REPORT INFORMATION
  Report Type: 
  Country: None (occurrence: None)
  Receive Date: 20100706
  Receipt Date: 20100625
  Transmission Date: 20110219
  Serious: Yes (Other)
  Sender: FDA-Public Use
  Company Number: JP-MERCK-1005USA02587

PATIENT
  Age: 75 Year
  Sex: Female
  Weight: 43 kg

DRUGS (9)
  1. JANUVIA [Suspect]
     Indication: BLOOD GLUCOSE ABNORMAL
     Route: 048
     Dates: start: 20100202, end: 20100328
  2. ASPIRIN [Concomitant]
     Indication: THROMBOSIS PROPHYLAXIS
     Route: 048
  3. CRESTOR [Concomitant]
     Indication: BLOOD CHOLESTEROL INCREASED
     Route: 048
  4. ZETIA [Concomitant]
     Indication: BLOOD CHOLESTEROL INCREASED
     Route: 048
  5. PEPCID RPD [Concomitant]
     Indication: ANTACID THERAPY
     Route: 048
  6. VASOLAN [Concomitant]
     Indication: HEART RATE ABNORMAL
     Route: 048
  7. BLOPRESS [Concomitant]
     Indication: CARDIAC DISORDER
     Route: 048
  8. LASIX [Concomitant]
     Indication: POLYURIA
     Route: 048
  9. ZYLORIC [Concomitant]
     Indication: BLOOD URIC ACID ABNORMAL
     Route: 048

REACTIONS (3)
  - CARDIAC FAILURE [None]
  - FALL [None]
  - TREMOR [None]
